FAERS Safety Report 20134085 (Version 1)
Quarter: 2021Q4

REPORT INFORMATION
  Report Type: Spontaneous
  Country: CN (occurrence: CN)
  Receive Date: 20211201
  Receipt Date: 20211201
  Transmission Date: 20220303
  Serious: Yes (Other)
  Sender: FDA-Public Use
  Company Number: CN-ABBVIE-21K-035-4178808-00

PATIENT
  Age: 80 Year
  Sex: Male
  Weight: 60 kg

DRUGS (5)
  1. VALPROATE SODIUM [Suspect]
     Active Substance: VALPROATE SODIUM
     Indication: Parkinson^s disease
     Route: 048
     Dates: start: 20200719, end: 20200722
  2. RISPERIDONE [Suspect]
     Active Substance: RISPERIDONE
     Indication: Parkinson^s disease
     Dosage: HS
     Route: 048
     Dates: start: 20200719, end: 20200722
  3. BACLOFEN [Suspect]
     Active Substance: BACLOFEN
     Indication: Parkinson^s disease
     Route: 048
     Dates: start: 20200719, end: 20200722
  4. BACLOFEN [Suspect]
     Active Substance: BACLOFEN
     Indication: Pain in extremity
  5. ENTACAPONE [Suspect]
     Active Substance: ENTACAPONE
     Indication: Parkinson^s disease
     Route: 048
     Dates: start: 20200719, end: 20200722

REACTIONS (3)
  - Depressed level of consciousness [Recovering/Resolving]
  - Lagophthalmos [Recovering/Resolving]
  - Urinary incontinence [Recovering/Resolving]

NARRATIVE: CASE EVENT DATE: 20200722
